FAERS Safety Report 6384301-6 (Version None)
Quarter: 2009Q3

REPORT INFORMATION
  Report Type: 
  Country: None (occurrence: None)
  Receive Date: 20090928
  Receipt Date: 20090914
  Transmission Date: 20100115
  Serious: Yes (Death)
  Sender: FDA-Public Use
  Company Number: 007590

PATIENT
  Age: 14 Year

DRUGS (4)
  1. BUSULFEX [Suspect]
     Indication: STEM CELL TRANSPLANT
     Dates: start: 19960101
  2. CYLCOPYHOSPHAMIDE (CYCLOPHOSPHAMIDE) [Concomitant]
  3. CAMPATH USA (ALEMTUZUMAB) [Concomitant]
  4. CICLOSPORIN (CICLOPSPORIN) [Concomitant]

REACTIONS (1)
  - INFECTION [None]
